FAERS Safety Report 19748833 (Version 2)
Quarter: 2022Q2

REPORT INFORMATION
  Report Type: Spontaneous
  Country: GB (occurrence: GB)
  Receive Date: 20210826
  Receipt Date: 20220614
  Transmission Date: 20220721
  Serious: Yes (Death, Life-Threatening, Other)
  Sender: FDA-Public Use
  Company Number: GB-CELLTRION HEALTHCARE HUNGARY KFT-2021GB008230

PATIENT

DRUGS (33)
  1. TAMOXIFEN [Suspect]
     Active Substance: TAMOXIFEN
     Indication: Breast cancer metastatic
     Dosage: 20 MILLIGRAM, ONCE A DAY
     Route: 048
     Dates: start: 20161010, end: 20190708
  2. DOCETAXEL [Suspect]
     Active Substance: DOCETAXEL
     Indication: Breast cancer metastatic
     Dosage: 120 MG. EVERY 3 WEEKS
     Route: 042
     Dates: start: 20160314, end: 20160810
  3. LETROZOLE [Suspect]
     Active Substance: LETROZOLE
     Indication: Breast cancer metastatic
     Dosage: 2.5 MICROGRAM, ONCE A DAY
     Route: 048
     Dates: start: 20190709
  4. LETROZOLE [Suspect]
     Active Substance: LETROZOLE
     Dosage: 3 MILLIGRAM, ONCE A DAY
     Route: 048
     Dates: start: 20190709
  5. LETROZOLE [Suspect]
     Active Substance: LETROZOLE
     Dosage: 2.5 MILLIGRAM, ONCE A DAY
     Route: 048
     Dates: start: 20190709
  6. PERTUZUMAB [Suspect]
     Active Substance: PERTUZUMAB
     Indication: Breast cancer metastatic
     Dosage: 840 MG, EVERY 3 WEEKS, INITIAL LOADING DOSE (PHARMACEUTICAL DOSE FORM: 230;CUMULATIVE DOSE 66801.66
     Route: 042
     Dates: start: 20160425, end: 20160425
  7. PERTUZUMAB [Suspect]
     Active Substance: PERTUZUMAB
     Dosage: 420 MG, EVERY 3 WEEKS, MAINTENANCE DOSE (PHARMACEUTICAL DOSE FORM: 230; CUMULATIVE DOSE 32980.832 MG
     Route: 042
     Dates: start: 20160516
  8. TRASTUZUMAB [Suspect]
     Active Substance: TRASTUZUMAB
     Indication: Breast cancer metastatic
     Dosage: 600 MG, EVERY 3 WEEKS (DOSE FORM: 231)
     Route: 058
     Dates: start: 20160425
  9. AMITRIPTYLINE [Concomitant]
     Active Substance: AMITRIPTYLINE
     Indication: Metastases to central nervous system
     Dosage: 10 MILLIGRAM, ONCE A DAY
     Route: 048
     Dates: start: 20210407
  10. BUTYLSCOPOLAMINE BROMIDE [Concomitant]
     Active Substance: BUTYLSCOPOLAMINE BROMIDE
     Indication: Product used for unknown indication
     Dosage: 80 MILLIGRAM, ONCE A DAY (20 MG, 4X/DAY)
     Route: 048
     Dates: start: 20160625
  11. BENZYDAMINE HYDROCHLORIDE [Concomitant]
     Active Substance: BENZYDAMINE HYDROCHLORIDE
     Indication: Mouth ulceration
     Dosage: 40 MILLILITER (10 ML, 4X/DAY)
     Route: 061
     Dates: start: 20160611
  12. CODEINE [Concomitant]
     Active Substance: CODEINE
     Indication: Phantom limb syndrome
     Dosage: 60 MILLIGRAM, ONCE A DAY
     Route: 048
     Dates: start: 20160919
  13. CODEINE [Concomitant]
     Active Substance: CODEINE
     Indication: Musculoskeletal chest pain
     Dosage: UNK
     Route: 065
  14. CEPHRADINE [Concomitant]
     Active Substance: CEPHRADINE
     Indication: Product used for unknown indication
     Dosage: 250 MILLIGRAM, EVERY 0.25 DAYS
     Route: 048
     Dates: start: 20201207
  15. CEPHRADINE [Concomitant]
     Active Substance: CEPHRADINE
     Indication: Product used for unknown indication
     Dosage: 1000 MILLIGRAM, ONCE A DAY
     Route: 048
     Dates: start: 20201207
  16. DEXAMETHASONE [Concomitant]
     Active Substance: DEXAMETHASONE
     Indication: Headache
     Dosage: 8 MILLIGRAM, ONCE A DAY, 8 MG, QD (PHARMACEUTICAL DOSE FORM: 245)
     Route: 048
     Dates: start: 201909, end: 20191010
  17. DEXAMETHASONE [Concomitant]
     Active Substance: DEXAMETHASONE
     Indication: Metastases to central nervous system
     Dosage: 2 MILLIGRAM, ONCE A DAY, 2 MG, QD (PHARMACEUTICAL DOSE FORM: 245; CUMULATIVE DOSE 812.0833 MG)
     Route: 048
     Dates: start: 20191011, end: 20191125
  18. DEXAMETHASONE [Concomitant]
     Active Substance: DEXAMETHASONE
     Dosage: 1.5 MILLIGRAM, ONCE A DAY, 1.5 MG, QD (PHARMACEUTICAL DOSE FORM: 245) (CUMULATIVE DOSE TO FIRST REAC
     Route: 048
     Dates: start: 20191126, end: 20191203
  19. DEXAMETHASONE [Concomitant]
     Active Substance: DEXAMETHASONE
     Dosage: 1 MILLIGRAM, ONCE A DAY, 1 MG, BID (PHARMACEUTICAL DOSE FORM: 245) (CUMULATIVE DOSE TO FIRST REACTIO
     Route: 048
     Dates: start: 20191204, end: 20191223
  20. DEXAMETHASONE [Concomitant]
     Active Substance: DEXAMETHASONE
     Dosage: 0.5 MILLIGRAM, ONCE A DAY, 0.5 MG, BID (PHARMACEUTICAL DOSE FORM: 245) (CUMULATIVE DOSE TO FIRST REA
     Route: 048
     Dates: start: 20191224, end: 202002
  21. DEXAMETHASONE [Concomitant]
     Active Substance: DEXAMETHASONE
     Dosage: 4 MILLIGRAM, ONCE A DAY, 4 MG, QD (PHARMACEUTICAL DOSE FORM: 245) (CUMULATIVE DOSE TO FIRST REACTION
     Route: 048
     Dates: start: 20200611
  22. DEXAMETHASONE [Concomitant]
     Active Substance: DEXAMETHASONE
     Dosage: 4 MILLIGRAM, ONCE A DAY, 4 MG, QD (PHARMACEUTICAL DOSE FORM: 245) (CUMULATIVE DOSE TO FIRST REACTION
     Route: 048
     Dates: start: 20210216
  23. DOCUSATE [Concomitant]
     Active Substance: DOCUSATE
     Indication: Constipation
     Dosage: 100 MG (PHARMACEUTICAL DOSE FORM: 245)
     Route: 048
     Dates: start: 20210226
  24. FLUCLOXACILLIN [Concomitant]
     Active Substance: FLUCLOXACILLIN
     Indication: Cellulitis
     Dosage: 2000 MILLIGRAM, ONCE A DAY
     Route: 048
     Dates: start: 20201215
  25. FLUCLOXACILLIN [Concomitant]
     Active Substance: FLUCLOXACILLIN
     Indication: Cellulitis
     Dosage: 500 MILLIGRAM, FOUR TIMES/DAY
     Route: 048
     Dates: start: 20201215
  26. IBUPROFEN [Concomitant]
     Active Substance: IBUPROFEN
     Indication: Musculoskeletal pain
     Dosage: 200 MILLIGRAM, AS NEEDED
     Route: 048
     Dates: start: 20160612
  27. KADCYLA [Concomitant]
     Active Substance: ADO-TRASTUZUMAB EMTANSINE
     Indication: Pulmonary mass
     Dosage: 220 MILLIGRAM, EVERY MONTH
     Route: 042
     Dates: start: 20200414
  28. POLYETHYLENE GLYCOL 3350\POTASSIUM CHLORIDE\SODIUM BICARBONATE\SODIUM [Concomitant]
     Active Substance: POLYETHYLENE GLYCOL 3350\POTASSIUM CHLORIDE\SODIUM BICARBONATE\SODIUM CHLORIDE
     Indication: Product used for unknown indication
     Dosage: UNK, ONCE A DAY
     Route: 048
     Dates: start: 20160627
  29. OMEPRAZOLE [Concomitant]
     Active Substance: OMEPRAZOLE
     Indication: Metastases to central nervous system
     Dosage: 40 MILLIGRAM, ONCE A DAY, 20 MG, 2X/DAY (PHARMACEUTICAL DOSE FORM: 245)
     Route: 048
     Dates: start: 201909
  30. MORPHINE SULFATE [Concomitant]
     Active Substance: MORPHINE SULFATE
     Indication: Metastases to central nervous system
     Dosage: 10 MILLIGRAM, AS NEEDED
     Route: 048
     Dates: start: 20210311
  31. NITROFURANTOIN [Concomitant]
     Active Substance: NITROFURANTOIN
     Indication: Product used for unknown indication
     Dosage: 200 MILLIGRAM, ONCE A DAY (100 MG TWO TIMES A DAY)
     Route: 048
     Dates: start: 20201202
  32. PERMETHRIN [Concomitant]
     Active Substance: PERMETHRIN
     Indication: Skin infection
     Dosage: 5 PERCENT
     Route: 061
     Dates: start: 20210311
  33. ACETAMINOPHEN [Concomitant]
     Active Substance: ACETAMINOPHEN
     Indication: Musculoskeletal pain
     Dosage: 1 GRAM, AS NECESSARY
     Route: 048
     Dates: start: 20160612

REACTIONS (13)
  - Death [Fatal]
  - Pulmonary mass [Fatal]
  - Lymphoedema [Recovered/Resolved]
  - Vision blurred [Recovered/Resolved]
  - Metastases to central nervous system [Recovered/Resolved]
  - Acarodermatitis [Recovered/Resolved]
  - Cellulitis [Recovered/Resolved]
  - Urinary tract infection [Recovered/Resolved]
  - Skin infection [Recovered/Resolved]
  - Headache [Recovered/Resolved]
  - Constipation [Recovered/Resolved]
  - Fatigue [Recovered/Resolved]
  - Incorrect route of product administration [Unknown]

NARRATIVE: CASE EVENT DATE: 20161001
